FAERS Safety Report 4465074-0 (Version None)
Quarter: 2004Q3

REPORT INFORMATION
  Report Type: 
  Country: None (occurrence: None)
  Receive Date: 20040928
  Receipt Date: 20040928
  Transmission Date: 20050211
  Serious: Yes (Hospitalization)
  Sender: FDA-Public Use
  Company Number: None

PATIENT
  Sex: Male

DRUGS (3)
  1. COLCHICINE 0.6 MG [Suspect]
     Indication: GOUT
     Dosage: 0.6 MG EVERY 4 HR ORAL
     Route: 048
  2. QUETIAPINE [Concomitant]
  3. RANITIDINE [Concomitant]

REACTIONS (3)
  - ABDOMINAL PAIN [None]
  - NAUSEA [None]
  - VOMITING [None]
